FAERS Safety Report 8130673-1 (Version None)
Quarter: 2012Q1

REPORT INFORMATION
  Report Type: 
  Country: None (occurrence: None)
  Receive Date: 20120213
  Receipt Date: 20120202
  Transmission Date: 20120608
  Serious: No
  Sender: FDA-Public Use
  Company Number: US-BIOGENIDEC-2011BI005491

PATIENT
  Age: 40 Year
  Sex: Male

DRUGS (3)
  1. TYSABRI [Suspect]
     Indication: MULTIPLE SCLEROSIS
     Route: 042
     Dates: start: 20101213
  2. ANTI-NAUSEA MEDICATION [Concomitant]
     Indication: PREMEDICATION
  3. MEDICATION (NOS) [Concomitant]
     Indication: PREMEDICATION

REACTIONS (7)
  - DISSOCIATION [None]
  - FATIGUE [None]
  - SOMNOLENCE [None]
  - MYALGIA [None]
  - SPINAL FUSION SURGERY [None]
  - INTERVERTEBRAL DISC DISORDER [None]
  - PARAESTHESIA [None]
